FAERS Safety Report 26135580 (Version 1)
Quarter: 2025Q4

REPORT INFORMATION
  Report Type: Spontaneous
  Country: US (occurrence: None)
  Receive Date: 20251208
  Receipt Date: 20251208
  Transmission Date: 20260118
  Serious: Yes (Life-Threatening, Hospitalization)
  Sender: FDA-CTU
  Company Number: None

PATIENT
  Age: 16 Year
  Sex: Male
  Weight: 94.5 kg

DRUGS (1)
  1. TERBINAFINE [Suspect]
     Active Substance: TERBINAFINE
     Indication: Onychomycosis
     Dates: start: 20251006, end: 20251114

REACTIONS (5)
  - Depression [None]
  - Suicidal ideation [None]
  - Decreased appetite [None]
  - Fatigue [None]
  - Chromaturia [None]

NARRATIVE: CASE EVENT DATE: 20251125
